FAERS Safety Report 9144758 (Version 1)
Quarter: 2013Q1

REPORT INFORMATION
  Report Type: Spontaneous
  Country: US (occurrence: US)
  Receive Date: 20130306
  Receipt Date: 20130306
  Transmission Date: 20140127
  Serious: No
  Sender: FDA-Public Use
  Company Number: US-ASTRAZENECA-2013SE05930

PATIENT
  Age: 49 Year
  Sex: Female
  Weight: 81.6 kg

DRUGS (5)
  1. ARIMIDEX [Suspect]
     Indication: BREAST CANCER FEMALE
     Route: 048
     Dates: start: 2008
  2. TOPROL XL [Suspect]
     Indication: HYPERTENSION
     Route: 048
     Dates: start: 20130125
  3. PROTONIX [Concomitant]
  4. CLONAZEPAM [Concomitant]
  5. DILTIAZEM [Concomitant]

REACTIONS (8)
  - Bone pain [Unknown]
  - Weight increased [Unknown]
  - Bone loss [Unknown]
  - Blood pressure increased [Unknown]
  - Libido decreased [Unknown]
  - Pain in extremity [Unknown]
  - Blood glucose increased [Unknown]
  - Pain [Unknown]
